FAERS Safety Report 12071380 (Version 1)
Quarter: 2016Q1

REPORT INFORMATION
  Report Type: Not Available
  Country: US (occurrence: US)
  Receive Date: 20160211
  Receipt Date: 20160211
  Transmission Date: 20160526
  Serious: No
  Sender: FDA-Public Use
  Company Number: US-ANIPHARMA-2015-US-001107

PATIENT
  Age: 56 Year
  Sex: Male
  Weight: 99.79 kg

DRUGS (2)
  1. REGLAN [Suspect]
     Active Substance: METOCLOPRAMIDE HYDROCHLORIDE
     Route: 050
  2. METOCLOPRAMIDE. [Suspect]
     Active Substance: METOCLOPRAMIDE

REACTIONS (5)
  - Depression [Unknown]
  - Insomnia [Unknown]
  - Nausea [Unknown]
  - Decreased appetite [Unknown]
  - Hypotension [Unknown]
